FAERS Safety Report 5253648-9 (Version None)
Quarter: 2007Q1

REPORT INFORMATION
  Report Type: 
  Country: None (occurrence: None)
  Receive Date: 20070301
  Receipt Date: 20070220
  Transmission Date: 20070707
  Serious: Yes (Other)
  Sender: FDA-Public Use
  Company Number: US-PFIZER INC-2007013787

PATIENT
  Age: 16 Year
  Sex: Female

DRUGS (2)
  1. ZOLOFT [Suspect]
  2. SERTRALINE [Suspect]
     Dosage: TEXT:UNKNOWN

REACTIONS (4)
  - HYPERTENSION [None]
  - IRRITABILITY [None]
  - MALAISE [None]
  - POSTURAL ORTHOSTATIC TACHYCARDIA SYNDROME [None]
